FAERS Safety Report 7601711-7 (Version None)
Quarter: 2011Q3

REPORT INFORMATION
  Report Type: 
  Country: None (occurrence: None)
  Receive Date: 20110711
  Receipt Date: 20110706
  Transmission Date: 20111222
  Serious: Yes (Hospitalization, Other)
  Sender: FDA-Public Use
  Company Number: GR-PFIZER INC-2011140931

PATIENT
  Age: 60 Year
  Sex: Male

DRUGS (2)
  1. AMOXICILLIN [Suspect]
     Indication: SOFT TISSUE INFECTION
  2. CLINDAMYCIN HCL [Suspect]
     Indication: SOFT TISSUE INFECTION
     Route: 048

REACTIONS (2)
  - ASCITES [None]
  - CLOSTRIDIAL INFECTION [None]
